FAERS Safety Report 5096224-3 (Version None)
Quarter: 2006Q3

REPORT INFORMATION
  Report Type: 
  Country: None (occurrence: None)
  Receive Date: 20060831
  Receipt Date: 20060814
  Transmission Date: 20061208
  Serious: Yes (Hospitalization, Other)
  Sender: FDA-Public Use
  Company Number: PAR_0749_2006

PATIENT
  Age: 22 Year
  Sex: Male

DRUGS (4)
  1. FLUOXETINE [Suspect]
     Dosage: 20 MG QDAY PO
     Route: 048
  2. DEXTROMETHORPHAN HYDROBROMIDE [Suspect]
     Dosage: DF PO
     Route: 048
  3. LITHIUM CARBONATE [Concomitant]
  4. CLONAZEPAM [Concomitant]

REACTIONS (10)
  - BLOOD BICARBONATE INCREASED [None]
  - BLOOD LACTIC ACID INCREASED [None]
  - BLOOD PRESSURE INCREASED [None]
  - DRUG ABUSER [None]
  - INCORRECT DOSE ADMINISTERED [None]
  - MYDRIASIS [None]
  - MYOCLONUS [None]
  - NYSTAGMUS [None]
  - PCO2 INCREASED [None]
  - SEROTONIN SYNDROME [None]
